FAERS Safety Report 10569928 (Version 1)
Quarter: 2014Q4

REPORT INFORMATION
  Report Type: Spontaneous
  Country: US (occurrence: None)
  Receive Date: 20141106
  Receipt Date: 20141106
  Transmission Date: 20150529
  Serious: No
  Sender: FDA-Public Use
  Company Number: None

PATIENT
  Age: 80 Year
  Sex: Male
  Weight: 84.82 kg

DRUGS (3)
  1. EFFIENT [Suspect]
     Active Substance: PRASUGREL HYDROCHLORIDE
     Indication: ANGIOPLASTY
     Dosage: AT BEDTIME, BY MOUTH
     Route: 048
     Dates: start: 20141015, end: 20141016
  2. METOPROLOL [Concomitant]
     Active Substance: METOPROLOL
  3. PLAVIX [Concomitant]
     Active Substance: CLOPIDOGREL BISULFATE

REACTIONS (4)
  - Feeling hot [None]
  - Paraesthesia [None]
  - Head discomfort [None]
  - Hot flush [None]

NARRATIVE: CASE EVENT DATE: 20141015
